FAERS Safety Report 4306394-X (Version None)
Quarter: 2004Q1

REPORT INFORMATION
  Report Type: 
  Country: None (occurrence: None)
  Receive Date: 20040225
  Receipt Date: 20030603
  Transmission Date: 20041129
  Serious: No
  Sender: FDA-Public Use
  Company Number: US-BRISTOL-MYERS SQUIBB COMPANY-12312518

PATIENT
  Sex: Female

DRUGS (1)
  1. EXCEDRIN (MIGRAINE) [Suspect]

REACTIONS (6)
  - ABDOMINAL PAIN [None]
  - ASTHENIA [None]
  - DIZZINESS [None]
  - HEADACHE [None]
  - MALAISE [None]
  - MEDICATION ERROR [None]
